FAERS Safety Report 21071248 (Version 1)
Quarter: 2022Q3

REPORT INFORMATION
  Report Type: Spontaneous
  Country: US (occurrence: US)
  Receive Date: 20220712
  Receipt Date: 20220712
  Transmission Date: 20221026
  Serious: Yes (Other)
  Sender: FDA-Public Use
  Company Number: US-BEXIMCO-2022BEX00044

PATIENT
  Sex: Female

DRUGS (4)
  1. METHOCARBAMOL [Suspect]
     Active Substance: METHOCARBAMOL
     Indication: Spinal operation
     Dosage: UNK
     Dates: start: 2018, end: 2019
  2. ROBAXIN [Suspect]
     Active Substance: METHOCARBAMOL
     Indication: Spinal operation
     Dosage: UNK
     Dates: start: 2019
  3. BENZENE [Suspect]
     Active Substance: BENZENE
  4. RADIATION THERAPY [Suspect]
     Active Substance: RADIATION THERAPY

REACTIONS (1)
  - Chronic myeloid leukaemia [Unknown]

NARRATIVE: CASE EVENT DATE: 20220101
